FAERS Safety Report 13181957 (Version 4)
Quarter: 2017Q4

REPORT INFORMATION
  Report Type: Spontaneous
  Country: US (occurrence: US)
  Receive Date: 20170202
  Receipt Date: 20171127
  Transmission Date: 20180320
  Serious: Yes (Death, Hospitalization, Other)
  Sender: FDA-Public Use
  Company Number: US-IMPAX LABORATORIES, INC-2016-IPXL-02353

PATIENT
  Age: 70 Year
  Sex: Male
  Weight: 77 kg

DRUGS (5)
  1. PRAMIPEXOLE. [Concomitant]
     Active Substance: PRAMIPEXOLE
     Indication: PRODUCT USED FOR UNKNOWN INDICATION
     Dosage: 0.375 MG, 5 TABLETS
     Route: 048
  2. PRAMIPEXOLE. [Concomitant]
     Active Substance: PRAMIPEXOLE
     Dosage: 0.375 MG, UNK
     Route: 048
  3. RYTARY [Suspect]
     Active Substance: CARBIDOPA\LEVODOPA
     Indication: PARKINSON^S DISEASE
     Dosage: 61.25/245 MG, 12 CAPSULES PER DAY
     Route: 048
     Dates: start: 2014
  4. ARICEPT [Concomitant]
     Active Substance: DONEPEZIL HYDROCHLORIDE
     Indication: COGNITIVE DISORDER
     Dosage: 5 MG, 1 TABLET DAILY
     Route: 048
  5. CARBIDOPA-LEVODOPA ER [Suspect]
     Active Substance: CARBIDOPA\LEVODOPA
     Indication: PARKINSON^S DISEASE
     Dosage: 25/100 MG 1.5 TABLETS EVERY THREE HOURS
     Route: 065

REACTIONS (8)
  - Myocardial infarction [Fatal]
  - Spinal cord disorder [Not Recovered/Not Resolved]
  - Anxiety [Unknown]
  - Inability to afford medication [Unknown]
  - Parkinson^s disease [Fatal]
  - Prescribed overdose [Unknown]
  - Drug effect incomplete [Unknown]
  - Seizure [Unknown]

NARRATIVE: CASE EVENT DATE: 201704
